FAERS Safety Report 6258731-7 (Version None)
Quarter: 2009Q3

REPORT INFORMATION
  Report Type: 
  Country: None (occurrence: None)
  Receive Date: 20090707
  Receipt Date: 20090626
  Transmission Date: 20100115
  Serious: Yes (Hospitalization)
  Sender: FDA-Public Use
  Company Number: B0578184A

PATIENT
  Sex: Male

DRUGS (6)
  1. VALTREX [Suspect]
     Indication: HERPES ZOSTER
     Dosage: 1000MG THREE TIMES PER DAY
     Route: 048
     Dates: start: 20090601, end: 20090603
  2. ALINAMIN-F [Concomitant]
     Indication: WERNICKE'S ENCEPHALOPATHY
     Dosage: 100MG PER DAY
     Route: 048
     Dates: start: 20090401
  3. RISPERDAL [Concomitant]
     Indication: RESTLESSNESS
     Route: 048
     Dates: start: 20090414, end: 20090604
  4. HALCION [Concomitant]
     Indication: INSOMNIA
     Dosage: .25MG PER DAY
     Route: 048
     Dates: start: 20090424, end: 20090604
  5. SILECE [Concomitant]
     Indication: INSOMNIA
     Dosage: 2MG PER DAY
     Route: 048
     Dates: start: 20090424, end: 20090604
  6. CONTOMIN [Concomitant]
     Indication: INSOMNIA
     Dosage: .5G PER DAY
     Route: 048
     Dates: start: 20090428, end: 20090604

REACTIONS (10)
  - ABNORMAL BEHAVIOUR [None]
  - ALTERED STATE OF CONSCIOUSNESS [None]
  - DEHYDRATION [None]
  - ENCEPHALOPATHY [None]
  - MUSCLE RIGIDITY [None]
  - NEPHROPATHY [None]
  - RENAL FAILURE [None]
  - SPEECH DISORDER [None]
  - TREMOR [None]
  - URINE OUTPUT DECREASED [None]
